FAERS Safety Report 5809915-0 (Version None)
Quarter: 2008Q3

REPORT INFORMATION
  Report Type: 
  Country: None (occurrence: None)
  Receive Date: 20080714
  Receipt Date: 20080714
  Transmission Date: 20090109
  Serious: Yes (Life-Threatening, Other)
  Sender: FDA-Public Use
  Company Number: None

PATIENT
  Age: 89 Year
  Sex: Male
  Weight: 65.7716 kg

DRUGS (1)
  1. DIGOXIN [Suspect]
     Dosage: 0.25 DAILY PO
     Route: 048
     Dates: start: 20050101

REACTIONS (2)
  - BRADYCARDIA [None]
  - CARDIOACTIVE DRUG LEVEL INCREASED [None]
